FAERS Safety Report 9707378 (Version 1)
Quarter: 2013Q4

REPORT INFORMATION
  Report Type: Spontaneous
  Country: US (occurrence: US)
  Receive Date: 20131125
  Receipt Date: 20131125
  Transmission Date: 20140711
  Serious: No
  Sender: FDA-Public Use
  Company Number: US-GLAXOSMITHKLINE-A1040863A

PATIENT
  Age: 42 Year
  Sex: Male

DRUGS (1)
  1. FLOVENT [Suspect]
     Indication: ASTHMA
     Route: 055
     Dates: start: 201102

REACTIONS (5)
  - Dyspnoea [Recovering/Resolving]
  - Drug ineffective [Recovering/Resolving]
  - Overdose [Unknown]
  - Drug administration error [Unknown]
  - Product quality issue [Unknown]
